FAERS Safety Report 23069530 (Version 1)
Quarter: 2023Q4

REPORT INFORMATION
  Report Type: Report from Study
  Country: CA (occurrence: CA)
  Receive Date: 20231016
  Receipt Date: 20231016
  Transmission Date: 20240110
  Serious: Yes (Death, Hospitalization)
  Sender: FDA-Public Use
  Company Number: CA-MYLANLABS-2023M1105632

PATIENT
  Age: 77 Year
  Sex: Female

DRUGS (4)
  1. CLOZAPINE [Suspect]
     Active Substance: CLOZAPINE
     Indication: Product used for unknown indication
     Dosage: 25 MILLIGRAM, PM
     Route: 065
     Dates: start: 200803
  2. LAMOTRIGINE [Suspect]
     Active Substance: LAMOTRIGINE
     Indication: Product used for unknown indication
     Dosage: 25 MILLIGRAM, BID
     Route: 065
  3. LITHIUM [Concomitant]
     Active Substance: LITHIUM
     Dosage: 150 MILLIGRAM, BID
     Route: 065
  4. EFFEXOR [Concomitant]
     Active Substance: VENLAFAXINE HYDROCHLORIDE
     Dosage: 74 MILLIGRAM, AM
     Route: 065

REACTIONS (5)
  - Death [Fatal]
  - Lethargy [Unknown]
  - Blood sodium increased [Unknown]
  - Hypophagia [Unknown]
  - Depressed level of consciousness [Unknown]

NARRATIVE: CASE EVENT DATE: 20230927
